FAERS Safety Report 5487051-3 (Version None)
Quarter: 2007Q4

REPORT INFORMATION
  Report Type: 
  Country: None (occurrence: None)
  Receive Date: 20071016
  Receipt Date: 20071012
  Transmission Date: 20080405
  Serious: Yes (Hospitalization)
  Sender: FDA-Public Use
  Company Number: US-JNJFOC-20071003275

PATIENT
  Age: 2 Year
  Sex: Male

DRUGS (1)
  1. TYLENOL (CAPLET) [Suspect]
     Indication: NASOPHARYNGITIS

REACTIONS (1)
  - CONVULSION [None]
